FAERS Safety Report 14246926 (Version 1)
Quarter: 2017Q4

REPORT INFORMATION
  Report Type: Spontaneous
  Country: US (occurrence: None)
  Receive Date: 20171201
  Receipt Date: 20171201
  Transmission Date: 20180321
  Serious: No
  Sender: FDA-Public Use
  Company Number: None

PATIENT
  Sex: Male

DRUGS (1)
  1. CAPECITABINE. [Suspect]
     Active Substance: CAPECITABINE
     Dosage: 1500 MG BID FOR 21 DAYS ON AND 7 DAYS OFF PO
     Route: 048
     Dates: start: 20171012, end: 20171201

REACTIONS (1)
  - Diarrhoea [None]
